FAERS Safety Report 5771748-1 (Version None)
Quarter: 2008Q2

REPORT INFORMATION
  Report Type: 
  Country: None (occurrence: None)
  Receive Date: 20080613
  Receipt Date: 20080603
  Transmission Date: 20081010
  Serious: Yes (Death, Life-Threatening, Hospitalization)
  Sender: FDA-Public Use
  Company Number: JP-WYE-H02585508

PATIENT
  Age: 76 Year
  Sex: Female

DRUGS (11)
  1. AMIODARONE HCL [Suspect]
     Dosage: ^TWO 100 MG TABLES FOR THE FIRST 3 TIMES^
     Route: 050
     Dates: start: 20080126, end: 20080127
  2. AMIODARONE HCL [Suspect]
     Dosage: ONE 100 MG TABLET, AM AND PM
     Route: 050
     Dates: start: 20080128, end: 20080131
  3. ALDACTONE [Concomitant]
     Dosage: 1 DOSE FORM (UNSPECIFIED), FREQUENCY UNKNOWN
     Route: 048
  4. ENALAPRIL MALEATE [Concomitant]
     Dosage: 0.5 DOSE FORM, FREQUENCY UNKNOWN
     Route: 048
  5. WARFARIN SODIUM [Concomitant]
     Dosage: DOSE UNKNOWN
     Route: 065
     Dates: end: 20080131
  6. MAINTATE [Concomitant]
     Dosage: 1 DOSE FORM (UNSPECIFIED), FREQUENCY UNKNOWN
     Route: 048
  7. LANSOPRAZOLE [Concomitant]
     Dosage: 1 DOSE FORM (UNSPECIFIED), FREQUENCY UNKNOWN
     Route: 048
  8. MUCODYNE [Concomitant]
     Dosage: 3 DOSE FORMS (UNSPECIFIED), FREQUENCY UNKNOWN
     Route: 048
  9. MEDICON [Concomitant]
     Dosage: 3 DOSE FORMS (UNSPECIFIED), FREQUENCY UNSPECIFIED
     Route: 048
  10. TORSEMIDE [Concomitant]
     Dosage: 2 DOSE FORMS (UNSPECIFIED), FREQUENCY UNKNOWN
     Route: 048
  11. ALOSITOL [Concomitant]
     Dosage: 0.5 DOSE FORM, FREQUENCY UNKNOWN
     Route: 048

REACTIONS (6)
  - CARDIAC ARREST [None]
  - DISSEMINATED INTRAVASCULAR COAGULATION [None]
  - HEPATITIS FULMINANT [None]
  - PLEURAL EFFUSION [None]
  - PNEUMONIA [None]
  - RENAL FAILURE [None]
